FAERS Safety Report 14377993 (Version 1)
Quarter: 2018Q1

REPORT INFORMATION
  Report Type: Report from Study
  Country: DE (occurrence: DE)
  Receive Date: 20180111
  Receipt Date: 20180111
  Transmission Date: 20180509
  Serious: Yes (Death, Hospitalization, Other)
  Sender: FDA-Public Use
  Company Number: DE-TEVA-2018-DE-843157

PATIENT
  Sex: Female
  Weight: 86.6 kg

DRUGS (14)
  1. CISPLATIN. [Suspect]
     Active Substance: CISPLATIN
     Indication: OVARIAN CANCER
     Dosage: 3 CYCLES
     Route: 065
     Dates: start: 201303, end: 201306
  2. CARBOPLATIN. [Concomitant]
     Active Substance: CARBOPLATIN
     Dosage: 6 CAYCLES
     Route: 042
     Dates: start: 201208, end: 201212
  3. GEMZAR [Concomitant]
     Active Substance: GEMCITABINE HYDROCHLORIDE
     Indication: OVARIAN CANCER
     Route: 065
     Dates: start: 20120912, end: 20121002
  4. AVASTIN [Suspect]
     Active Substance: BEVACIZUMAB
     Indication: OVARIAN CANCER
     Route: 042
     Dates: start: 20120912, end: 20120912
  5. AVASTIN [Suspect]
     Active Substance: BEVACIZUMAB
     Dosage: 6 CYCLES
     Route: 042
     Dates: start: 201208, end: 201212
  6. DOXORUBICIN [Suspect]
     Active Substance: DOXORUBICIN
     Indication: OVARIAN CANCER
     Dosage: 2CYCLES
     Route: 065
     Dates: start: 201306
  7. AVASTIN [Suspect]
     Active Substance: BEVACIZUMAB
     Route: 042
     Dates: start: 20121002, end: 20121002
  8. TOPOTECAN [Suspect]
     Active Substance: TOPOTECAN HYDROCHLORIDE
     Indication: OVARIAN CANCER
     Route: 065
     Dates: start: 201309
  9. CARBOPLATIN. [Concomitant]
     Active Substance: CARBOPLATIN
     Dosage: 2 CYCLES
     Route: 042
     Dates: start: 201101
  10. CARBOPLATIN. [Concomitant]
     Active Substance: CARBOPLATIN
     Dosage: 4 CYCLES
     Route: 042
     Dates: start: 201103, end: 201103
  11. CAELYX [Suspect]
     Active Substance: DOXORUBICIN HYDROCHLORIDE
     Indication: OVARIAN CANCER
     Dosage: 2 CYCLES
     Route: 065
     Dates: start: 201307
  12. CARBOPLATIN. [Concomitant]
     Active Substance: CARBOPLATIN
     Indication: OVARIAN CANCER
     Route: 042
     Dates: start: 20120912, end: 20121002
  13. DOXORUBICIN [Suspect]
     Active Substance: DOXORUBICIN
     Dosage: 3 CYCLES
     Route: 065
     Dates: start: 201303, end: 201306
  14. GEMZAR [Concomitant]
     Active Substance: GEMCITABINE HYDROCHLORIDE
     Dosage: 6 CYCLES
     Route: 065
     Dates: start: 201208, end: 201212

REACTIONS (7)
  - Drug intolerance [Recovered/Resolved]
  - Respiratory failure [Recovered/Resolved]
  - Ascites [Unknown]
  - Urinary tract obstruction [Unknown]
  - Pleural effusion [Fatal]
  - Ileus [Fatal]
  - Respiratory failure [Fatal]

NARRATIVE: CASE EVENT DATE: 201309
